FAERS Safety Report 16949216 (Version 1)
Quarter: 2019Q4

REPORT INFORMATION
  Report Type: Spontaneous
  Country: PT (occurrence: PT)
  Receive Date: 20191023
  Receipt Date: 20191023
  Transmission Date: 20200122
  Serious: Yes (Other)
  Sender: FDA-Public Use
  Company Number: PT-TEVA-2019-PT-1125331

PATIENT
  Age: 47 Year
  Sex: Male

DRUGS (7)
  1. ZOTEPINE [Suspect]
     Active Substance: ZOTEPINE
     Route: 065
  2. BIPERIDEN [Suspect]
     Active Substance: BIPERIDEN
     Route: 065
  3. DOMPERIDONE [Concomitant]
     Active Substance: DOMPERIDONE
  4. HALOPERIDOL. [Suspect]
     Active Substance: HALOPERIDOL
     Route: 065
  5. QUETIAPINE FUMURATE [Suspect]
     Active Substance: QUETIAPINE FUMARATE
     Route: 065
  6. CYMAMEMAZINE [Suspect]
     Active Substance: CYAMEMAZINE
     Route: 065
  7. CARBAMAZEPINE. [Concomitant]
     Active Substance: CARBAMAZEPINE

REACTIONS (1)
  - Colitis ischaemic [Recovered/Resolved]
